FAERS Safety Report 18969384 (Version 2)
Quarter: 2021Q2

REPORT INFORMATION
  Report Type: Spontaneous
  Country: NO (occurrence: NO)
  Receive Date: 20210304
  Receipt Date: 20210406
  Transmission Date: 20210717
  Serious: Yes (Death)
  Sender: FDA-Public Use
  Company Number: NO-DENTSPLY PHARMACEUTICALS-2021SCDP000057

PATIENT
  Age: 56 Year
  Sex: Female

DRUGS (2)
  1. HYDROGEN PEROXIDE. [Suspect]
     Active Substance: HYDROGEN PEROXIDE
     Indication: ENDODONTIC PROCEDURE
     Dosage: UNK
  2. XYLOCAINE WITH ADRENALINE (EPINEPHRINE) [Suspect]
     Active Substance: EPINEPHRINE BITARTRATE\LIDOCAINE HYDROCHLORIDE
     Indication: ENDODONTIC PROCEDURE
     Dosage: 1.50 MILLILITER (20 MG/ML + 12.5 MICROGRAM/ML )
     Route: 065
     Dates: start: 20210209, end: 20210209

REACTIONS (1)
  - Anaphylactic shock [Fatal]

NARRATIVE: CASE EVENT DATE: 20210209
